FAERS Safety Report 11539280 (Version 1)
Quarter: 2015Q3

REPORT INFORMATION
  Report Type: Spontaneous
  Country: US (occurrence: US)
  Receive Date: 20150923
  Receipt Date: 20150923
  Transmission Date: 20151125
  Serious: Yes (Other)
  Sender: FDA-Public Use
  Company Number: US-PFIZER INC-2015303665

PATIENT
  Age: 29 Year
  Sex: Male

DRUGS (1)
  1. SUTENT [Suspect]
     Active Substance: SUNITINIB MALATE
     Indication: NEOPLASM MALIGNANT
     Dosage: UNK

REACTIONS (7)
  - Herpes zoster [Unknown]
  - Cough [Unknown]
  - Disease progression [Unknown]
  - Neoplasm malignant [Unknown]
  - Lung infection [Recovered/Resolved]
  - Pneumonia [Recovered/Resolved]
  - Immune system disorder [Unknown]
